FAERS Safety Report 6305211-6 (Version None)
Quarter: 2009Q3

REPORT INFORMATION
  Report Type: 
  Country: None (occurrence: None)
  Receive Date: 20090810
  Receipt Date: 20090810
  Transmission Date: 20100115
  Serious: Yes (Other)
  Sender: FDA-Public Use
  Company Number: None

PATIENT
  Sex: Male
  Weight: 62.7 kg

DRUGS (1)
  1. MYCOPHENOLATE MOFETIL [Suspect]
     Dosage: 750 MG BID ORAL
     Route: 048
     Dates: start: 20090515, end: 20090731

REACTIONS (5)
  - ABDOMINAL DISCOMFORT [None]
  - BLOOD CREATININE INCREASED [None]
  - DIARRHOEA [None]
  - PRODUCT SUBSTITUTION ISSUE [None]
  - VOMITING [None]
